FAERS Safety Report 11519616 (Version 2)
Quarter: 2016Q3

REPORT INFORMATION
  Report Type: Report from Study
  Country: US (occurrence: US)
  Receive Date: 20150918
  Receipt Date: 20160705
  Transmission Date: 20161109
  Serious: Yes (Other)
  Sender: FDA-Public Use
  Company Number: US-ROCHE-1633839

PATIENT
  Sex: Female

DRUGS (5)
  1. TRASTUZUMAB [Suspect]
     Active Substance: TRASTUZUMAB
     Dosage: 2 MG/KG (FOLLOWING A 4-MG/KG LOADING DOSE)
     Route: 042
  2. TRASTUZUMAB [Suspect]
     Active Substance: TRASTUZUMAB
     Dosage: 6 MG/KG (AFTER AN 8-MG/KG LOADING DOSE) MAINTENANCE DOSE CHANGED FOR PATIENTS ENROLLED FROM JUL/2009
     Route: 042
  3. LAPATINIB [Suspect]
     Active Substance: LAPATINIB
     Indication: HER-2 POSITIVE BREAST CANCER
     Route: 048
  4. TRASTUZUMAB [Suspect]
     Active Substance: TRASTUZUMAB
     Indication: HER-2 POSITIVE BREAST CANCER
     Dosage: LOADING DOSE
     Route: 042
  5. TRASTUZUMAB [Suspect]
     Active Substance: TRASTUZUMAB
     Dosage: LOADING DOSE CHANGED FOR PATIENTS ENROLLED FROM JUL/2009
     Route: 042

REACTIONS (4)
  - Fatigue [Unknown]
  - Hypokalaemia [Unknown]
  - Gastrointestinal disorder [Unknown]
  - Diarrhoea [Unknown]
